FAERS Safety Report 16762993 (Version 2)
Quarter: 2019Q4

REPORT INFORMATION
  Report Type: Spontaneous
  Country: US (occurrence: US)
  Receive Date: 20190902
  Receipt Date: 20191015
  Transmission Date: 20200122
  Serious: No
  Sender: FDA-Public Use
  Company Number: US-AMGEN-USASP2019138132

PATIENT
  Age: 65 Year
  Sex: Male

DRUGS (2)
  1. EPOGEN [Suspect]
     Active Substance: ERYTHROPOIETIN
     Indication: NEPHROGENIC ANAEMIA
     Dosage: 4000 UNIT (1 ML), QWK (EVERY SATURDAY FOR 4 WEEKS)
     Route: 065
     Dates: start: 201908, end: 20190914
  2. EPOGEN [Suspect]
     Active Substance: ERYTHROPOIETIN
     Dosage: 4000 UNIT (1 ML), QWK (EVERY SATURDAY FOR 4 WEEKS)
     Route: 065
     Dates: start: 201908, end: 20190914

REACTIONS (1)
  - Product storage error [Unknown]

NARRATIVE: CASE EVENT DATE: 20190816
